FAERS Safety Report 5587780-7 (Version None)
Quarter: 2008Q1

REPORT INFORMATION
  Report Type: 
  Country: None (occurrence: None)
  Receive Date: 20080108
  Receipt Date: 20080103
  Transmission Date: 20080703
  Serious: Yes (Hospitalization, Other)
  Sender: FDA-Public Use
  Company Number: 022200

PATIENT
  Age: 68 Year
  Sex: Male
  Weight: 103 kg

DRUGS (19)
  1. METFORMIN HYDROCHLORIDE [Suspect]
     Indication: DIABETES MELLITUS
     Dosage: 850 MG, BID, ORAL
     Route: 048
     Dates: start: 20040201, end: 20060207
  2. AMIODARONE HCL [Suspect]
     Indication: ATRIAL FIBRILLATION
     Dosage: 200 MG,QD, ORAL
     Route: 048
     Dates: start: 20060101, end: 20060207
  3. ASPIRIN [Concomitant]
  4. HEPARIN [Concomitant]
  5. BLINDED EPTIFIBATIDE (S-P)(BLINDED EPTIFIBATIDE (S-P) [Suspect]
     Indication: ACUTE CORONARY SYNDROME
     Dosage: 9 ML, SINGLE, IV BOLUS; 9 ML, SINGLE, IV BOLUS; 16 ML, Q1HR, INTRAVENOUS
     Route: 040
     Dates: start: 20060106, end: 20060109
  6. BLINDED EPTIFIBATIDE (S-P)(BLINDED EPTIFIBATIDE (S-P) [Suspect]
     Indication: ACUTE CORONARY SYNDROME
     Dosage: 9 ML, SINGLE, IV BOLUS; 9 ML, SINGLE, IV BOLUS; 16 ML, Q1HR, INTRAVENOUS
     Route: 040
     Dates: start: 20060109, end: 20060109
  7. BLINDED EPTIFIBATIDE (S-P)(BLINDED EPTIFIBATIDE (S-P) [Suspect]
     Indication: ACUTE CORONARY SYNDROME
     Dosage: 9 ML, SINGLE, IV BOLUS; 9 ML, SINGLE, IV BOLUS; 16 ML, Q1HR, INTRAVENOUS
     Route: 040
     Dates: start: 20060109, end: 20060109
  8. BLINDED EPTIFIBATIDE (S-P)(BLINDED EPTIFIBATIDE (S-P) [Suspect]
     Indication: ACUTE CORONARY SYNDROME
     Dosage: 9 ML, SINGLE, IV BOLUS; 9 ML, SINGLE, IV BOLUS; 16 ML, Q1HR, INTRAVENOUS
     Route: 040
     Dates: start: 20060109, end: 20060109
  9. METOPROLOL TARTRATE [Suspect]
     Indication: HYPERTENSION
     Dosage: 50 MG, BID, ORAL
     Route: 048
     Dates: start: 20021001, end: 20060207
  10. CLONIDINE [Concomitant]
  11. FUROSEMIDE [Concomitant]
  12. SIMVASTATIN [Concomitant]
  13. FELODIPINE [Concomitant]
  14. OMEPRAZOLE [Concomitant]
  15. CLONIDINE [Concomitant]
  16. FUROSEMIDE [Concomitant]
  17. SIMVASTATIN [Concomitant]
  18. FELODIPINE [Concomitant]
  19. OMEPRAZOLE [Concomitant]

REACTIONS (4)
  - BRADYCARDIA [None]
  - DIZZINESS [None]
  - PERICARDIAL EFFUSION [None]
  - RENAL FAILURE [None]
